FAERS Safety Report 26180255 (Version 1)
Quarter: 2025Q4

REPORT INFORMATION
  Report Type: Other
  Country: GB (occurrence: GB)
  Receive Date: 20251219
  Receipt Date: 20251219
  Transmission Date: 20260118
  Serious: Yes (Disabling, Other)
  Sender: LUPIN
  Company Number: None

PATIENT
  Age: 16 Year
  Sex: Female
  Weight: 68 kg

DRUGS (1)
  1. SERTRALINE [Suspect]
     Active Substance: SERTRALINE HYDROCHLORIDE
     Indication: Product used for unknown indication
     Dosage: WAS MIXED BETWEEN 25-50-100MG
     Route: 065

REACTIONS (3)
  - Anhedonia [Recovered/Resolved with Sequelae]
  - Female orgasmic disorder [Not Recovered/Not Resolved]
  - Sensory loss [Not Recovered/Not Resolved]

NARRATIVE: CASE EVENT DATE: 20220513
